FAERS Safety Report 9718010 (Version 1)
Quarter: 2013Q4

REPORT INFORMATION
  Report Type: Spontaneous
  Country: US (occurrence: US)
  Receive Date: 20131125
  Receipt Date: 20131125
  Transmission Date: 20140711
  Serious: No
  Sender: FDA-Public Use
  Company Number: US-VIVUS-2013V1000425

PATIENT
  Age: 29 Year
  Sex: Female
  Weight: 81.72 kg

DRUGS (2)
  1. QSYMIA 7.5MG/46MG [Suspect]
     Indication: WEIGHT DECREASED
     Dosage: STARTED ON APPROXIMATELY 08-MAY-2013
     Route: 048
     Dates: start: 201305
  2. TRINESSA [Concomitant]
     Indication: ORAL CONTRACEPTION
     Route: 048

REACTIONS (2)
  - Visual impairment [Not Recovered/Not Resolved]
  - Paraesthesia [Not Recovered/Not Resolved]
